FAERS Safety Report 19905401 (Version 1)
Quarter: 2021Q4

REPORT INFORMATION
  Report Type: Spontaneous
  Country: US (occurrence: US)
  Receive Date: 20211001
  Receipt Date: 20211001
  Transmission Date: 20220303
  Serious: No
  Sender: FDA-Public Use
  Company Number: US-PFIZER INC-202101154086

PATIENT
  Sex: Female

DRUGS (2)
  1. ESTRING [Suspect]
     Active Substance: ESTRADIOL
     Dosage: 2 MG
  2. PROGESTERONE [Suspect]
     Active Substance: PROGESTERONE
     Dosage: UNK

REACTIONS (5)
  - Intentional device misuse [Unknown]
  - Nausea [Unknown]
  - Somnolence [Unknown]
  - Blood oestrogen increased [Unknown]
  - Malaise [Unknown]

NARRATIVE: CASE EVENT DATE: 20210901
